FAERS Safety Report 4679145-7 (Version None)
Quarter: 2005Q2

REPORT INFORMATION
  Report Type: 
  Country: None (occurrence: None)
  Receive Date: 20050527
  Receipt Date: 20050208
  Transmission Date: 20051028
  Serious: No
  Sender: FDA-Public Use
  Company Number: S05-USA-00640-01

PATIENT
  Age: 48 Year
  Sex: Female

DRUGS (4)
  1. CAMPRAL [Suspect]
     Indication: ABSTAINS FROM ALCOHOL
     Dosage: 666 MG TID PO
     Route: 048
     Dates: start: 20050206
  2. DIOVAN [Concomitant]
  3. ZOLOFT [Concomitant]
  4. FLEXERIL [Concomitant]

REACTIONS (1)
  - DIZZINESS [None]
